FAERS Safety Report 7480310-4 (Version None)
Quarter: 2011Q2

REPORT INFORMATION
  Report Type: 
  Country: None (occurrence: None)
  Receive Date: 20110512
  Receipt Date: 20110512
  Transmission Date: 20111010
  Serious: Yes (Other)
  Sender: FDA-Public Use
  Company Number: None

PATIENT
  Sex: Female
  Weight: 52.1637 kg

DRUGS (1)
  1. LIVALO [Suspect]
     Indication: BLOOD CHOLESTEROL
     Dosage: LIVALO 2 MG QD PO
     Route: 048
     Dates: start: 20110401

REACTIONS (2)
  - FLUID RETENTION [None]
  - CONDITION AGGRAVATED [None]
